FAERS Safety Report 6005829-4 (Version None)
Quarter: 2008Q4

REPORT INFORMATION
  Report Type: 
  Country: None (occurrence: None)
  Receive Date: 20081217
  Receipt Date: 20071227
  Transmission Date: 20090506
  Serious: No
  Sender: FDA-Public Use
  Company Number: US-AMGEN-KDL258362

PATIENT
  Sex: Female

DRUGS (1)
  1. ENBREL [Suspect]
     Indication: PSORIASIS
     Route: 058
     Dates: start: 20061206

REACTIONS (5)
  - EXOSTOSIS [None]
  - IMPAIRED HEALING [None]
  - PAIN [None]
  - SKIN PAPILLOMA [None]
  - STAPHYLOCOCCAL INFECTION [None]
